FAERS Safety Report 5732121-5 (Version None)
Quarter: 2008Q2

REPORT INFORMATION
  Report Type: 
  Country: None (occurrence: None)
  Receive Date: 20080508
  Receipt Date: 20080429
  Transmission Date: 20081010
  Serious: Yes (Hospitalization)
  Sender: FDA-Public Use
  Company Number: FR-AMGEN-UK276723

PATIENT
  Sex: Male

DRUGS (1)
  1. ARANESP [Suspect]
     Indication: RENAL FAILURE CHRONIC
     Route: 058
     Dates: start: 20061206, end: 20080318

REACTIONS (4)
  - DRUG ERUPTION [None]
  - ECZEMA INFECTED [None]
  - EOSINOPHILIA [None]
  - PRURITUS [None]
